FAERS Safety Report 10030912 (Version 2)
Quarter: 2014Q1

REPORT INFORMATION
  Report Type: Spontaneous
  Country: US (occurrence: US)
  Receive Date: 20140323
  Receipt Date: 20140323
  Transmission Date: 20141002
  Serious: Yes (Other)
  Sender: FDA-Public Use
  Company Number: US-GE HEALTHCARE MEDICAL DIAGNOSTICS-OSCN-PR-0902S-0086

PATIENT
  Sex: Male

DRUGS (9)
  1. OMNISCAN [Suspect]
     Indication: HEADACHE
     Route: 042
     Dates: start: 20030402, end: 20030402
  2. MAGNEVIST [Suspect]
     Indication: PAIN
     Route: 042
     Dates: start: 20031010, end: 20031010
  3. MAGNEVIST [Suspect]
     Indication: MYOCARDIAL ISCHAEMIA
     Route: 042
     Dates: start: 20040504, end: 20040504
  4. MAGNEVIST [Suspect]
     Indication: RENAL ARTERY STENOSIS
     Route: 042
     Dates: start: 20050304, end: 20050304
  5. MAGNEVIST [Suspect]
     Indication: CARDIAC FAILURE CONGESTIVE
     Route: 042
     Dates: start: 20050315, end: 20050315
  6. MAGNEVIST [Suspect]
     Route: 042
     Dates: start: 20050607, end: 20050607
  7. PROHANCE [Suspect]
     Indication: TRANSIENT ISCHAEMIC ATTACK
     Route: 042
     Dates: start: 20030508, end: 20030508
  8. PROHANCE [Suspect]
     Indication: PAIN
     Route: 042
     Dates: start: 20031116, end: 20031116
  9. EPOGEN [Concomitant]

REACTIONS (1)
  - Nephrogenic systemic fibrosis [Not Recovered/Not Resolved]
